FAERS Safety Report 5965645-6 (Version None)
Quarter: 2008Q4

REPORT INFORMATION
  Report Type: 
  Country: None (occurrence: None)
  Receive Date: 20081125
  Receipt Date: 20081020
  Transmission Date: 20090506
  Serious: Yes (Death, Other)
  Sender: FDA-Public Use
  Company Number: IT-ROCHE-594287

PATIENT
  Age: 46 Year
  Sex: Male

DRUGS (15)
  1. ENFUVIRTIDE [Suspect]
     Indication: HIV INFECTION
     Route: 065
  2. ENFUVIRTIDE [Suspect]
     Route: 065
  3. SULFAMETHOXAZOLE AND TRIMETHOPRIM [Suspect]
     Route: 048
  4. GANCICLOVIR [Suspect]
     Route: 042
  5. CYCLOSPORINE [Suspect]
     Indication: PROPHYLAXIS
     Dosage: 150 + 150 MG
     Route: 065
  6. STEROID NOS [Suspect]
     Indication: PROPHYLAXIS
     Route: 065
  7. FOSAMPRENAVIR [Suspect]
     Indication: HIV INFECTION
     Route: 065
  8. FOSAMPRENAVIR [Suspect]
     Route: 065
  9. TENOFOVIR [Suspect]
     Indication: HIV INFECTION
     Route: 065
  10. TENOFOVIR [Suspect]
     Route: 065
  11. RITONAVIR [Suspect]
     Indication: HIV INFECTION
     Route: 065
  12. RITONAVIR [Suspect]
     Route: 065
  13. LAMIVUDINA [Suspect]
     Indication: HIV INFECTION
     Route: 065
  14. LAMIVUDINA [Suspect]
     Route: 065
  15. FLUCONAZOLE [Concomitant]
     Indication: ORAL CANDIDIASIS

REACTIONS (5)
  - ASCITES [None]
  - CANDIDIASIS [None]
  - CARDIAC TAMPONADE [None]
  - CYTOMEGALOVIRUS TEST [None]
  - RENAL FAILURE ACUTE [None]
